FAERS Safety Report 7814046-4 (Version None)
Quarter: 2011Q4

REPORT INFORMATION
  Report Type: 
  Country: None (occurrence: None)
  Receive Date: 20111014
  Receipt Date: 20111012
  Transmission Date: 20120403
  Serious: Yes (Disabling)
  Sender: FDA-Public Use
  Company Number: DE-ASTELLAS-2011EU005394

PATIENT
  Age: 61 Year
  Sex: Male
  Weight: 68 kg

DRUGS (1)
  1. MICAFUNGIN INJECTION [Suspect]
     Indication: ANTIFUNGAL PROPHYLAXIS
     Dosage: UNK UNK, UID/QD
     Route: 042
     Dates: start: 20101225, end: 20110111

REACTIONS (2)
  - VOCAL CORD PARALYSIS [None]
  - HYPOGLOSSAL NERVE PARALYSIS [None]
